FAERS Safety Report 15361212 (Version 1)
Quarter: 2018Q3

REPORT INFORMATION
  Report Type: Spontaneous
  Country: FR (occurrence: FR)
  Receive Date: 20180907
  Receipt Date: 20180907
  Transmission Date: 20181010
  Serious: Yes (Other)
  Sender: FDA-Public Use
  Company Number: PHHY2018FR089145

PATIENT
  Age: 17 Year
  Sex: Female

DRUGS (1)
  1. ALPRAZOLAM. [Suspect]
     Active Substance: ALPRAZOLAM
     Indication: CHEMICAL SUBMISSION
     Dosage: 1 DF, (1 ?G/L)
     Route: 048
     Dates: start: 201612, end: 20170213

REACTIONS (1)
  - Victim of chemical submission [Recovered/Resolved]

NARRATIVE: CASE EVENT DATE: 201612
